FAERS Safety Report 4940297-2 (Version None)
Quarter: 2006Q1

REPORT INFORMATION
  Report Type: 
  Country: None (occurrence: None)
  Receive Date: 20060310
  Receipt Date: 20050829
  Transmission Date: 20060701
  Serious: Yes (Hospitalization, Disabling)
  Sender: FDA-Public Use
  Company Number: US-MERCK-0508USA05089

PATIENT
  Age: 64 Year
  Sex: Male
  Weight: 98 kg

DRUGS (3)
  1. VIOXX [Suspect]
     Indication: NECK PAIN
     Route: 048
     Dates: start: 20011201, end: 20041001
  2. VIOXX [Suspect]
     Indication: BACK PAIN
     Route: 048
     Dates: start: 20011201, end: 20041001
  3. ASPIRIN [Concomitant]
     Route: 065

REACTIONS (7)
  - ARTERIAL OCCLUSIVE DISEASE [None]
  - BACK DISORDER [None]
  - CHEST PAIN [None]
  - COUGH [None]
  - INJURY [None]
  - PAIN IN EXTREMITY [None]
  - PYREXIA [None]
